FAERS Safety Report 9560662 (Version 1)
Quarter: 2013Q3

REPORT INFORMATION
  Report Type: Spontaneous
  Country: US (occurrence: US)
  Receive Date: 20130927
  Receipt Date: 20130927
  Transmission Date: 20140515
  Serious: No
  Sender: FDA-Public Use
  Company Number: US-BIOGENIDEC-2013BI053034

PATIENT
  Sex: Female

DRUGS (2)
  1. TECFIDERA [Suspect]
     Indication: MULTIPLE SCLEROSIS
     Route: 048
     Dates: start: 20130605, end: 2013
  2. TECFIDERA [Suspect]
     Indication: MULTIPLE SCLEROSIS
     Route: 048
     Dates: start: 2013, end: 2013

REACTIONS (8)
  - Flushing [Unknown]
  - Night sweats [Unknown]
  - Menopausal symptoms [Unknown]
  - Blood pressure increased [Unknown]
  - Heart rate increased [Unknown]
  - Irritability [Unknown]
  - Rash pruritic [Unknown]
  - Feeling hot [Unknown]
